FAERS Safety Report 8173449-1 (Version None)
Quarter: 2012Q1

REPORT INFORMATION
  Report Type: 
  Country: None (occurrence: None)
  Receive Date: 20120229
  Receipt Date: 20120220
  Transmission Date: 20120608
  Serious: Yes (Other)
  Sender: FDA-Public Use
  Company Number: US-BAYER-2012-017453

PATIENT

DRUGS (2)
  1. ASPIRIN [Suspect]
     Dosage: UNK UNK, QD
  2. ALEVE (CAPLET) [Suspect]
     Dosage: UNK, QD

REACTIONS (1)
  - THROMBOCYTOPENIA [None]
